FAERS Safety Report 19591856 (Version 1)
Quarter: 2021Q3

REPORT INFORMATION
  Report Type: Spontaneous
  Country: US (occurrence: US)
  Receive Date: 20210721
  Receipt Date: 20210721
  Transmission Date: 20211014
  Serious: No
  Sender: FDA-Public Use
  Company Number: US-ROCHE-2853230

PATIENT

DRUGS (1)
  1. ACTEMRA [Suspect]
     Active Substance: TOCILIZUMAB
     Indication: COVID-19
     Dosage: WITHDREW 10 ML OF NS FROM A 150 ML BAG AND INSERTED 40 ML OF ACTEMRA
     Route: 042

REACTIONS (4)
  - Intercepted medication error [Unknown]
  - No adverse event [Unknown]
  - Product preparation issue [Unknown]
  - Off label use [Unknown]
